FAERS Safety Report 6034259-4 (Version None)
Quarter: 2009Q1

REPORT INFORMATION
  Report Type: 
  Country: None (occurrence: None)
  Receive Date: 20090112
  Receipt Date: 20090105
  Transmission Date: 20090719
  Serious: Yes (Other)
  Sender: FDA-Public Use
  Company Number: US-ROCHE-600312

PATIENT
  Sex: Female
  Weight: 46.7 kg

DRUGS (9)
  1. BONIVA [Suspect]
     Indication: OSTEOPOROSIS
     Route: 042
     Dates: start: 20080821
  2. LEVOXYL [Concomitant]
     Indication: HYPOTHYROIDISM
     Dosage: DOSE: 50
     Route: 048
  3. CALCIUM [Concomitant]
  4. VIT D [Concomitant]
  5. MULTI-VITAMIN [Concomitant]
     Dosage: DRUG: MULTIPLE VITAMINS
  6. PROTONIX [Concomitant]
  7. CRESTOR [Concomitant]
     Dosage: STRENGTH + FORMULATION: MG DOSE: 5
     Route: 048
     Dates: start: 20080808
  8. XANAX [Concomitant]
     Indication: ANXIETY
     Dosage: STRENGTH + FORMULATION: MG DOSE: 0.05
     Route: 048
  9. LEXAPRO [Concomitant]
     Indication: ANXIETY
     Dosage: STRENGTH + FORMULATION: MG DOSE: 5
     Route: 048

REACTIONS (1)
  - CELLULITIS [None]
